FAERS Safety Report 8263296-4 (Version None)
Quarter: 2012Q2

REPORT INFORMATION
  Report Type: 
  Country: None (occurrence: None)
  Receive Date: 20120405
  Receipt Date: 20120329
  Transmission Date: 20120825
  Serious: Yes (Other)
  Sender: FDA-Public Use
  Company Number: US-BAYER-2012-000132

PATIENT
  Sex: Female

DRUGS (10)
  1. YAZ [Suspect]
     Dosage: UNK
     Dates: start: 20080101, end: 20090301
  2. YASMIN [Suspect]
     Dosage: UNK
     Dates: start: 20040201, end: 20080101
  3. LISINOPRIL [Concomitant]
  4. LORTAB [Concomitant]
  5. PREMPRO [Concomitant]
     Dosage: UNK
     Dates: start: 20090101
  6. VITAMIN D [Concomitant]
  7. CALCIUM CARBONATE [Concomitant]
  8. SKELAXIN [Concomitant]
  9. MECLIZINE [Concomitant]
  10. PREDNISONE [Concomitant]

REACTIONS (4)
  - PAIN [None]
  - DEPRESSION [None]
  - CHOLELITHIASIS [None]
  - GALLBLADDER DISORDER [None]
